FAERS Safety Report 9396160 (Version 1)
Quarter: 2013Q3

REPORT INFORMATION
  Report Type: Spontaneous
  Country: NO (occurrence: NO)
  Receive Date: 20130711
  Receipt Date: 20130711
  Transmission Date: 20140515
  Serious: Yes (Other)
  Sender: FDA-Public Use
  Company Number: NO-B.I. PHARMACEUTICALS,INC./RIDGEFIELD-2013-SW-00357NO

PATIENT
  Sex: Female

DRUGS (11)
  1. PRADAXA [Suspect]
     Indication: ATRIAL FIBRILLATION
     Dosage: 220 MG
     Dates: start: 201301, end: 20130619
  2. ATACAND [Concomitant]
  3. PROBECID [Concomitant]
  4. NITROGLYCERIN [Concomitant]
  5. SELO-ZOK [Concomitant]
  6. BETNOVAT [Concomitant]
  7. ZYRTEC [Concomitant]
  8. DAKTACORT [Concomitant]
  9. SAROTEX [Concomitant]
  10. BURINEX [Concomitant]
  11. ZANTAC [Concomitant]

REACTIONS (1)
  - Autoimmune haemolytic anaemia [Unknown]
